FAERS Safety Report 6763504-2 (Version None)
Quarter: 2010Q2

REPORT INFORMATION
  Report Type: 
  Country: None (occurrence: None)
  Receive Date: 20100610
  Receipt Date: 20100609
  Transmission Date: 20101027
  Serious: Yes (Disabling)
  Sender: FDA-Public Use
  Company Number: FR-SHIRE-SPV1-2010-01076

PATIENT

DRUGS (3)
  1. XAGRID [Suspect]
     Indication: ESSENTIAL THROMBOCYTHAEMIA
     Dosage: .5 MG, 4 DF / DAY
     Route: 048
     Dates: start: 20091109, end: 20100329
  2. LEVOTHYROXINE SODIUM [Concomitant]
     Indication: DRUG USE FOR UNKNOWN INDICATION
     Route: 048
  3. MIRENA [Concomitant]
     Indication: CONTRACEPTION
     Dosage: 20 UG, UNK
     Route: 015

REACTIONS (1)
  - NEUROPATHY PERIPHERAL [None]
